FAERS Safety Report 17144992 (Version 1)
Quarter: 2019Q4

REPORT INFORMATION
  Report Type: Spontaneous
  Country: US (occurrence: US)
  Receive Date: 20191211
  Receipt Date: 20191211
  Transmission Date: 20200122
  Serious: Yes (Hospitalization)
  Sender: FDA-Public Use
  Company Number: None

PATIENT
  Age: 32 Year
  Sex: Male

DRUGS (5)
  1. RASUVO [Suspect]
     Active Substance: METHOTREXATE SODIUM
     Indication: CROHN^S DISEASE
     Dosage: ?          OTHER FREQUENCY:ONCE PER WEEK;?
     Route: 058
     Dates: start: 20191113
  2. GINGER ROOT [Concomitant]
     Active Substance: GINGER
  3. PROBIOTIC [Concomitant]
     Active Substance: PROBIOTICS NOS
  4. PANCREAZE [Concomitant]
     Active Substance: PANCRELIPASE AMYLASE\PANCRELIPASE LIPASE\PANCRELIPASE PROTEASE
  5. CYMBALTA [Concomitant]
     Active Substance: DULOXETINE HYDROCHLORIDE

REACTIONS (2)
  - Pancreatitis [None]
  - Crohn^s disease [None]

NARRATIVE: CASE EVENT DATE: 20191202
